FAERS Safety Report 4298093-8 (Version None)
Quarter: 2004Q1

REPORT INFORMATION
  Report Type: 
  Country: None (occurrence: None)
  Receive Date: 20040218
  Receipt Date: 20020418
  Transmission Date: 20041129
  Serious: Yes (Hospitalization, Other)
  Sender: FDA-Public Use
  Company Number: US-BRISTOL-MYERS SQUIBB COMPANY-11841467

PATIENT
  Age: 55 Year
  Sex: Female

DRUGS (10)
  1. STADOL [Suspect]
     Indication: PAIN
     Route: 045
  2. VIBRAMYCIN [Concomitant]
  3. REGLAN [Concomitant]
  4. PREMARIN [Concomitant]
  5. DALMANE [Concomitant]
  6. DEMEROL [Concomitant]
  7. PHENERGAN [Concomitant]
  8. EMETE-CON [Concomitant]
  9. TYLENOL W/ CODEINE NO. 3 [Concomitant]
  10. DULCOLAX [Concomitant]

REACTIONS (2)
  - DEPENDENCE [None]
  - DRUG ADDICT [None]
